FAERS Safety Report 15665795 (Version 1)
Quarter: 2018Q4

REPORT INFORMATION
  Report Type: Spontaneous
  Country: BR (occurrence: BR)
  Receive Date: 20181128
  Receipt Date: 20181128
  Transmission Date: 20190205
  Serious: Yes (Hospitalization)
  Sender: FDA-Public Use
  Company Number: BR-MYLANLABS-2018M1088094

PATIENT
  Age: 27 Year
  Sex: Male

DRUGS (3)
  1. ESTRADIOL. [Suspect]
     Active Substance: ESTRADIOL
     Indication: GENDER REASSIGNMENT THERAPY
     Route: 065
  2. MEDROXYPROGESTERONE [Suspect]
     Active Substance: MEDROXYPROGESTERONE
     Indication: GENDER REASSIGNMENT THERAPY
     Route: 065
  3. ALGESTONE ACETOPHENIDE [Suspect]
     Active Substance: ALGESTONE ACETOPHENIDE
     Indication: GENDER REASSIGNMENT THERAPY
     Route: 065

REACTIONS (2)
  - Systemic lupus erythematosus [Recovered/Resolved]
  - Lupus nephritis [Recovered/Resolved]
